FAERS Safety Report 5029268-8 (Version None)
Quarter: 2006Q2

REPORT INFORMATION
  Report Type: 
  Country: None (occurrence: None)
  Receive Date: 20060619
  Receipt Date: 20060215
  Transmission Date: 20061013
  Serious: No
  Sender: FDA-Public Use
  Company Number: US-BRISTOL-MYERS SQUIBB COMPANY-13285200

PATIENT
  Age: 51 Year
  Sex: Female
  Weight: 68 kg

DRUGS (7)
  1. ABILIFY ORAL SOLUTION 1 MG/ML [Suspect]
     Indication: NECK PAIN
     Route: 048
     Dates: start: 20060202, end: 20060203
  2. ABILIFY ORAL SOLUTION 1 MG/ML [Suspect]
     Indication: HEADACHE
     Route: 048
     Dates: start: 20060202, end: 20060203
  3. LEVOTHYROXINE SODIUM [Concomitant]
  4. CYMBALTA [Concomitant]
  5. SOMA [Concomitant]
  6. SALSALATE [Concomitant]
  7. PROVIGIL [Concomitant]

REACTIONS (16)
  - CANDIDIASIS [None]
  - CONFUSIONAL STATE [None]
  - COORDINATION ABNORMAL [None]
  - DYSGEUSIA [None]
  - DYSKINESIA [None]
  - DYSPNOEA [None]
  - DYSTONIA [None]
  - GASTRITIS [None]
  - HEADACHE [None]
  - HYPERVENTILATION [None]
  - INAPPROPRIATE AFFECT [None]
  - INSOMNIA [None]
  - MUSCLE SPASMS [None]
  - NAUSEA [None]
  - PSEUDOPORPHYRIA [None]
  - TIC [None]
